FAERS Safety Report 5319760-0 (Version None)
Quarter: 2007Q2

REPORT INFORMATION
  Report Type: 
  Country: None (occurrence: None)
  Receive Date: 20070503
  Receipt Date: 20070420
  Transmission Date: 20071010
  Serious: Yes (Other)
  Sender: FDA-Public Use
  Company Number: 2007-157613-NL

PATIENT
  Age: 27 Year
  Sex: Female
  Weight: 59 kg

DRUGS (1)
  1. NUVARING [Suspect]
     Dosage: VAGINAL
     Route: 067

REACTIONS (4)
  - INFLAMMATION [None]
  - MEDICAL DEVICE COMPLICATION [None]
  - VAGINAL DISCHARGE [None]
  - VAGINAL DYSPLASIA [None]
